FAERS Safety Report 5150629-0 (Version None)
Quarter: 2006Q4

REPORT INFORMATION
  Report Type: 
  Country: None (occurrence: None)
  Receive Date: 20061108
  Receipt Date: 20061026
  Transmission Date: 20070319
  Serious: Yes (Other)
  Sender: FDA-Public Use
  Company Number: 2006134714

PATIENT
  Sex: Female

DRUGS (4)
  1. FELDENE [Suspect]
     Indication: PNEUMONIA
     Dosage: ORAL
     Route: 048
  2. MELOXICAM                   (MELOXICAM) [Suspect]
     Dates: start: 20061018
  3. POLYCARBOPHIL CALCIUM [Concomitant]
  4. ACETAMINOPHEN W/ CODEINE [Concomitant]

REACTIONS (4)
  - CONSTIPATION [None]
  - DIVERTICULUM [None]
  - MALAISE [None]
  - VOMITING [None]
